FAERS Safety Report 12686919 (Version 1)
Quarter: 2016Q3

REPORT INFORMATION
  Report Type: Spontaneous
  Country: US (occurrence: US)
  Receive Date: 20160825
  Receipt Date: 20160825
  Transmission Date: 20161109
  Serious: No
  Sender: FDA-Public Use
  Company Number: US-JAZZ-2016-US-007154

PATIENT
  Sex: Female

DRUGS (28)
  1. XYREM [Suspect]
     Active Substance: SODIUM OXYBATE
     Dosage: 4.5 G, BID
     Route: 048
     Dates: start: 201503
  2. BACLOFEN. [Concomitant]
     Active Substance: BACLOFEN
  3. MAGNESIUM GLUCONATE [Concomitant]
     Active Substance: MAGNESIUM GLUCONATE
  4. MODAFINIL. [Concomitant]
     Active Substance: MODAFINIL
  5. ALBUTEROL SULFATE HFA [Concomitant]
  6. FENTANYL. [Concomitant]
     Active Substance: FENTANYL
  7. METFORMIN HCL [Concomitant]
     Active Substance: METFORMIN HYDROCHLORIDE
  8. CALTRATE WITH VITAMIN D [Concomitant]
     Active Substance: CALCIUM CARBONATE\CHOLECALCIFEROL
  9. LYRICA [Concomitant]
     Active Substance: PREGABALIN
  10. NEXIUM [Concomitant]
     Active Substance: ESOMEPRAZOLE MAGNESIUM
  11. AMITRIPTYLINE HCL [Concomitant]
     Active Substance: AMITRIPTYLINE
  12. VALIUM [Concomitant]
     Active Substance: DIAZEPAM
  13. XYREM [Suspect]
     Active Substance: SODIUM OXYBATE
     Indication: CATAPLEXY
     Dosage: DOSE ADJUSTMENTS
     Route: 048
  14. LANTUS [Concomitant]
     Active Substance: INSULIN GLARGINE
  15. METOPROLOL TARTRATE. [Concomitant]
     Active Substance: METOPROLOL TARTRATE
  16. BIOTIN [Concomitant]
     Active Substance: BIOTIN
  17. HUMULIN NOS [Concomitant]
     Active Substance: INSULIN HUMAN
  18. PRAVASTATIN SODIUM. [Concomitant]
     Active Substance: PRAVASTATIN SODIUM
  19. XYREM [Suspect]
     Active Substance: SODIUM OXYBATE
     Indication: NARCOLEPSY
     Dosage: 2.25 G, BID
     Route: 048
     Dates: start: 201502, end: 201502
  20. MULTIVITAMINS [Concomitant]
     Active Substance: VITAMINS
  21. VITAMIN B12 [Concomitant]
     Active Substance: CYANOCOBALAMIN
  22. NUVIGIL [Concomitant]
     Active Substance: ARMODAFINIL
  23. RANITIDINE. [Concomitant]
     Active Substance: RANITIDINE
  24. OXYCODONE AND ACETAMINOPHEN [Concomitant]
     Active Substance: ACETAMINOPHEN\OXYCODONE HYDROCHLORIDE
  25. MORPHINE SULF CR [Concomitant]
  26. POTASSIUM CHLORIDE. [Concomitant]
     Active Substance: POTASSIUM CHLORIDE
  27. LISINOPRIL. [Concomitant]
     Active Substance: LISINOPRIL
  28. TIZANIDINE HCL [Concomitant]
     Active Substance: TIZANIDINE HYDROCHLORIDE

REACTIONS (1)
  - Temporomandibular joint syndrome [Unknown]
